FAERS Safety Report 11560044 (Version 1)
Quarter: 2015Q3

REPORT INFORMATION
  Report Type: Spontaneous
  Country: US (occurrence: US)
  Receive Date: 20150916
  Receipt Date: 20150916
  Transmission Date: 20151125
  Serious: No
  Sender: FDA-Public Use
  Company Number: US-ELI_LILLY_AND_COMPANY-US200809002254

PATIENT
  Sex: Female

DRUGS (2)
  1. FORTEO [Suspect]
     Active Substance: TERIPARATIDE
     Dosage: UNK, UNK
  2. REMICADE [Concomitant]
     Active Substance: INFLIXIMAB
     Indication: ARTHRITIS

REACTIONS (4)
  - Medication error [Recovered/Resolved]
  - Blepharospasm [Recovered/Resolved]
  - Feeling abnormal [Not Recovered/Not Resolved]
  - Accidental overdose [Recovered/Resolved]

NARRATIVE: CASE EVENT DATE: 20080909
